FAERS Safety Report 6149112-5 (Version None)
Quarter: 2009Q2

REPORT INFORMATION
  Report Type: 
  Country: None (occurrence: None)
  Receive Date: 20090407
  Receipt Date: 20090327
  Transmission Date: 20091009
  Serious: Yes (Death)
  Sender: FDA-Public Use
  Company Number: WAES 0807USA05595

PATIENT
  Age: 68 Year
  Sex: Male

DRUGS (16)
  1. CAP VORINOSTAT [Suspect]
     Indication: NON-SMALL CELL LUNG CANCER
     Dosage: 400 MG/DAILY, PO;
     Route: 048
     Dates: start: 20080508, end: 20080521
  2. CAP VORINOSTAT [Suspect]
     Indication: NON-SMALL CELL LUNG CANCER
     Dosage: 400 MG/DAILY, PO;
     Route: 048
     Dates: start: 20080603, end: 20080616
  3. CAP VORINOSTAT [Suspect]
     Indication: NON-SMALL CELL LUNG CANCER
     Dosage: 400 MG/DAILY, PO;
     Route: 048
     Dates: start: 20080624, end: 20080707
  4. CAP VORINOSTAT [Suspect]
     Indication: NON-SMALL CELL LUNG CANCER
     Dosage: 400 MG/DAILY, PO;
     Route: 048
     Dates: start: 20080715, end: 20080726
  5. CARBOPLATIN [Suspect]
     Indication: NON-SMALL CELL LUNG CANCER
     Dosage: 441 MG/1X, IV
     Route: 042
     Dates: start: 20080512, end: 20080512
  6. CARBOPLATIN [Suspect]
     Indication: NON-SMALL CELL LUNG CANCER
     Dosage: 441 MG/1X, IV
     Route: 042
     Dates: start: 20080603, end: 20080603
  7. CARBOPLATIN [Suspect]
     Indication: NON-SMALL CELL LUNG CANCER
     Dosage: 441 MG/1X, IV
     Route: 042
     Dates: start: 20080624, end: 20080624
  8. CARBOPLATIN [Suspect]
     Indication: NON-SMALL CELL LUNG CANCER
     Dosage: 441 MG/1X, IV
     Route: 042
     Dates: start: 20080715, end: 20080715
  9. PACLITAXEL [Suspect]
     Indication: NON-SMALL CELL LUNG CANCER
     Dosage: 360 MG/1X, IV
     Route: 042
     Dates: start: 20080512, end: 20080512
  10. PACLITAXEL [Suspect]
     Indication: NON-SMALL CELL LUNG CANCER
     Dosage: 360 MG/1X, IV
     Route: 042
     Dates: start: 20080603, end: 20080603
  11. PACLITAXEL [Suspect]
     Indication: NON-SMALL CELL LUNG CANCER
     Dosage: 360 MG/1X, IV
     Route: 042
     Dates: start: 20080624, end: 20080624
  12. PACLITAXEL [Suspect]
     Indication: NON-SMALL CELL LUNG CANCER
     Dosage: 360 MG/1X, IV
     Route: 042
     Dates: start: 20080715, end: 20080715
  13. RANIDIL [Concomitant]
  14. SOLDESAM [Concomitant]
  15. TRIMETON [Concomitant]
  16. ZOFRAN [Concomitant]

REACTIONS (7)
  - ASTHENIA [None]
  - CONFUSIONAL STATE [None]
  - DIARRHOEA [None]
  - HAEMOGLOBIN DECREASED [None]
  - HYPERPYREXIA [None]
  - RASH [None]
  - REFUSAL OF TREATMENT BY PATIENT [None]
